FAERS Safety Report 12779497 (Version 1)
Quarter: 2016Q3

REPORT INFORMATION
  Report Type: Spontaneous
  Country: US (occurrence: US)
  Receive Date: 20160923
  Receipt Date: 20160923
  Transmission Date: 20161109
  Serious: Yes (Other)
  Sender: FDA-Public Use
  Company Number: None

PATIENT
  Age: 62 Year
  Sex: Female
  Weight: 112.5 kg

DRUGS (2)
  1. IBUPROFEN. [Suspect]
     Active Substance: IBUPROFEN
     Indication: ROTATOR CUFF SYNDROME
     Route: 048
     Dates: start: 20160227, end: 20160824
  2. MOTRIN [Concomitant]
     Active Substance: IBUPROFEN

REACTIONS (2)
  - Depression [None]
  - Confusional state [None]

NARRATIVE: CASE EVENT DATE: 20160801
